FAERS Safety Report 23718874 (Version 1)
Quarter: 2024Q2

REPORT INFORMATION
  Report Type: Spontaneous
  Country: NO (occurrence: NO)
  Receive Date: 20240408
  Receipt Date: 20240408
  Transmission Date: 20240716
  Serious: Yes (Other)
  Sender: FDA-Public Use
  Company Number: None

PATIENT
  Sex: Female

DRUGS (4)
  1. CYCLOPHOSPHAMIDE [Suspect]
     Active Substance: CYCLOPHOSPHAMIDE
     Dosage: 1000 MG, A TOTAL OF 13 INFUSIONS WERE GIVEN IN CYCLES. IN TOTAL, 13 G CYCLOPHOSPHAMIDE WERE GIVEN DU
     Route: 042
     Dates: start: 20100520, end: 20101220
  2. AZATHIOPRINE SODIUM [Suspect]
     Active Substance: AZATHIOPRINE SODIUM
     Indication: Granulomatosis with polyangiitis
     Dosage: 100 MG, ONCE A DAY, START DATE: JAN-2011, STOP DATE: 2015
     Route: 048
  3. AZATHIOPRINE SODIUM [Suspect]
     Active Substance: AZATHIOPRINE SODIUM
     Dosage: 75 MG, ONCE A DAY, START DATE: 2015, STOP DATE: 18-MAR-2024
     Route: 065
  4. PREDNISOLONE [Concomitant]
     Active Substance: PREDNISOLONE
     Dosage: HIGH DOSE (NOT SPECIFIED) IN 2010, AND 7.5 MG DAILY FROM JANUARY 2011, WHICH WAS USED FOR A COUPLE O
     Route: 065

REACTIONS (3)
  - Rectal cancer metastatic [Unknown]
  - Metastases to liver [Unknown]
  - Malignant melanoma [Unknown]

NARRATIVE: CASE EVENT DATE: 20150101
